FAERS Safety Report 10055879 (Version 1)
Quarter: 2014Q2

REPORT INFORMATION
  Report Type: Report from Study
  Country: CA (occurrence: CA)
  Receive Date: 20140403
  Receipt Date: 20140403
  Transmission Date: 20141212
  Serious: Yes (Other)
  Sender: FDA-Public Use
  Company Number: CA-JNJFOC-20140317368

PATIENT
  Age: 31 Year
  Sex: Female
  Weight: 57 kg

DRUGS (5)
  1. REMICADE [Suspect]
     Indication: COLITIS ULCERATIVE
     Route: 042
     Dates: start: 20120929
  2. HYDROCORTISONE [Concomitant]
     Route: 065
  3. BENADRYL [Concomitant]
     Route: 065
  4. TYLENOL [Concomitant]
     Route: 065
  5. SOLU MEDROL [Concomitant]
     Route: 065

REACTIONS (2)
  - Caesarean section [Recovered/Resolved]
  - Exposure during pregnancy [Recovered/Resolved]
